FAERS Safety Report 14941967 (Version 4)
Quarter: 2019Q1

REPORT INFORMATION
  Report Type: Spontaneous
  Country: US (occurrence: US)
  Receive Date: 20180527
  Receipt Date: 20190123
  Transmission Date: 20190417
  Serious: No
  Sender: FDA-Public Use
  Company Number: US-JNJFOC-20180516750

PATIENT
  Sex: Female
  Weight: 83.46 kg

DRUGS (16)
  1. CEVIMELINE. [Concomitant]
     Active Substance: CEVIMELINE
     Route: 065
  2. CYMBALTA [Concomitant]
     Active Substance: DULOXETINE HYDROCHLORIDE
     Route: 065
  3. LOSARTAN. [Concomitant]
     Active Substance: LOSARTAN
     Route: 065
  4. TRADJENTA [Concomitant]
     Active Substance: LINAGLIPTIN
     Route: 065
  5. SUMATRIPTAN. [Concomitant]
     Active Substance: SUMATRIPTAN
     Route: 065
  6. GLIPIZIDE. [Concomitant]
     Active Substance: GLIPIZIDE
     Route: 065
  7. FOSAMAX [Concomitant]
     Active Substance: ALENDRONATE SODIUM
     Route: 065
  8. SIMPONI [Suspect]
     Active Substance: GOLIMUMAB
     Indication: RHEUMATOID ARTHRITIS
     Route: 058
  9. ATORVASTATIN [Concomitant]
     Active Substance: ATORVASTATIN
     Route: 065
  10. LEFLUNOMIDE. [Concomitant]
     Active Substance: LEFLUNOMIDE
     Route: 065
  11. TRESIBA [Concomitant]
     Active Substance: INSULIN DEGLUDEC
     Route: 065
  12. NORVASC [Concomitant]
     Active Substance: AMLODIPINE BESYLATE
     Route: 065
  13. BYDUREON [Concomitant]
     Active Substance: EXENATIDE
     Route: 065
  14. FENTANYL. [Concomitant]
     Active Substance: FENTANYL
     Route: 065
  15. CALCIUM [Concomitant]
     Active Substance: CALCIUM
     Route: 065
  16. LAMICTAL [Concomitant]
     Active Substance: LAMOTRIGINE
     Route: 065

REACTIONS (2)
  - Arthritis [Not Recovered/Not Resolved]
  - Drug ineffective [Unknown]
